FAERS Safety Report 6235507-8 (Version None)
Quarter: 2009Q2

REPORT INFORMATION
  Report Type: 
  Country: None (occurrence: None)
  Receive Date: 20090618
  Receipt Date: 20080617
  Transmission Date: 20091009
  Serious: No
  Sender: FDA-Public Use
  Company Number: US-ASTRAZENECA-2008UW12246

PATIENT
  Age: 57 Year
  Sex: Female
  Weight: 49.4 kg

DRUGS (4)
  1. RHINOCORT [Suspect]
     Indication: HYPERSENSITIVITY
     Dosage: 32 UG, 2 SPRAYS DAILY
     Route: 045
     Dates: start: 20070601
  2. RHINOCORT [Suspect]
     Dosage: 32 UG, ONE SPRAY DAILY
     Route: 045
  3. CLIMARA [Concomitant]
  4. FOSAMAX [Concomitant]

REACTIONS (2)
  - DRY SKIN [None]
  - EPISTAXIS [None]
